FAERS Safety Report 10152130 (Version 1)
Quarter: 2014Q2

REPORT INFORMATION
  Report Type: Spontaneous
  Country: US (occurrence: US)
  Receive Date: 20140505
  Receipt Date: 20140505
  Transmission Date: 20141212
  Serious: Yes (Hospitalization)
  Sender: FDA-Public Use
  Company Number: US-BAYER-2014-064697

PATIENT
  Age: 37 Year
  Sex: Female
  Weight: 78.01 kg

DRUGS (14)
  1. YAZ [Suspect]
  2. GIANVI [Suspect]
  3. PEPCID [Concomitant]
     Dosage: 40 MG, QD
     Dates: start: 20120530
  4. ALLEGRA [Concomitant]
     Dosage: UNK
     Dates: start: 20120530
  5. PROTONIX [Concomitant]
     Dosage: 40 MG, QD
     Dates: start: 20120620
  6. VALTREX [Concomitant]
     Dosage: 500 MG, BID
     Dates: start: 20120620
  7. ALBUTEROL [Concomitant]
     Dosage: UNK UNK, PRN
     Dates: start: 20120620
  8. SUDAFED [Concomitant]
     Dosage: 30 MG, PRN
     Dates: start: 20120620
  9. FLONASE [Concomitant]
     Dosage: UNK
     Dates: start: 20120620
  10. OXYCODONE [Concomitant]
  11. ZYRTEC [Concomitant]
     Dosage: UNK
     Dates: start: 20120620
  12. LEVAQUIN [Concomitant]
  13. SINGULAIR [Concomitant]
     Dosage: UNK
     Dates: start: 20120620
  14. COLACE [Concomitant]
     Dosage: UNK UNK, PRN
     Dates: start: 20120628

REACTIONS (3)
  - Deep vein thrombosis [None]
  - Pulmonary embolism [Recovered/Resolved]
  - Pelvic venous thrombosis [None]
